FAERS Safety Report 5214799-8 (Version None)
Quarter: 2006Q4

REPORT INFORMATION
  Report Type: 
  Country: None (occurrence: None)
  Receive Date: 20061113
  Receipt Date: 20051202
  Transmission Date: 20070319
  Serious: Yes (Other)
  Sender: FDA-Public Use
  Company Number: US-JNJFOC-20051005195

PATIENT
  Age: 58 Year
  Sex: Male
  Weight: 81.6475 kg

DRUGS (3)
  1. LEVAQUIN [Suspect]
     Indication: CELLULITIS
     Dosage: 250 MG, INTRAVENOUS
     Route: 042
     Dates: start: 20051001
  2. LEVAQUIN [Suspect]
     Indication: PYREXIA
     Dosage: 250 MG, INTRAVENOUS
     Route: 042
     Dates: start: 20051001
  3. LEVAQUIN [Suspect]
     Indication: CELLULITIS
     Dosage: 250 MG, 1 IN 1 DAY, ORAL
     Route: 048

REACTIONS (3)
  - BLOOD CREATININE INCREASED [None]
  - BLOOD UREA INCREASED [None]
  - FLUID OVERLOAD [None]
